FAERS Safety Report 6753705-1 (Version None)
Quarter: 2010Q2

REPORT INFORMATION
  Report Type: 
  Country: None (occurrence: None)
  Receive Date: 20100603
  Receipt Date: 20100527
  Transmission Date: 20101027
  Serious: Yes (Hospitalization)
  Sender: FDA-Public Use
  Company Number: FR-BRISTOL-MYERS SQUIBB COMPANY-15126774

PATIENT
  Age: 50 Year
  Sex: Male

DRUGS (5)
  1. VIDEX [Suspect]
     Indication: ANTIRETROVIRAL THERAPY
     Dates: start: 20050401, end: 20091116
  2. BACTRIM [Suspect]
     Dosage: 1DF: 2 ADMINISTRATIONS
     Dates: start: 20091103, end: 20091106
  3. EPIVIR [Suspect]
     Indication: ANTIRETROVIRAL THERAPY
     Dates: start: 20050401, end: 20091116
  4. VALPROIC ACID [Concomitant]
  5. KALETRA [Concomitant]
     Indication: ANTIRETROVIRAL THERAPY
     Dates: start: 20050101

REACTIONS (3)
  - DIARRHOEA HAEMORRHAGIC [None]
  - METABOLIC ACIDOSIS [None]
  - RESPIRATORY DISORDER [None]
